FAERS Safety Report 6370154 (Version 3)
Quarter: 2020Q3

REPORT INFORMATION
  Report Type: Spontaneous
  Country: CN (occurrence: CN)
  Receive Date: 20070730
  Receipt Date: 20070815
  Transmission Date: 20201104
  Serious: Yes (Other)
  Sender: FDA-Public Use
  Company Number: CN-ROCHE-508359

PATIENT
  Age: 20 Year
  Sex: Male

DRUGS (6)
  1. IBANDRONIC ACID. [Suspect]
     Active Substance: IBANDRONIC ACID
     Route: 042
     Dates: start: 20070723, end: 20070723
  2. ENDOSTATIN [Concomitant]
     Indication: METASTASES TO BONE
     Dosage: DRUG: RECOMBINANT HUMAN ENDOSTATIN/ENDOSTAR. OTHER INDICATION: MEDIASTINAL MASS. ROUTE: IVGTT.
     Route: 042
     Dates: start: 20070718, end: 20070719
  3. CEFOPERAZONE [Concomitant]
     Active Substance: CEFOPERAZONE
     Dosage: DRUG: SULBACTRAM+CEFOPERAZONE/XIN KUAI XIN. ROUTE REPORTED AS IVGTT.
     Route: 042
     Dates: start: 20070709, end: 20070720
  4. DEXAMETHASONE. [Concomitant]
     Active Substance: DEXAMETHASONE
     Dosage: OTHER INDICATION: CHILL
     Route: 042
  5. PAZUFLOXACIN MESILATE [Concomitant]
     Dosage: DRUG: PAZUFLOXACIN MESILATE/FA DUO LIN. ROUTE REPORTED AS IVGTT.
     Route: 042
     Dates: start: 20070709, end: 20070720
  6. IBANDRONIC ACID. [Suspect]
     Active Substance: IBANDRONIC ACID
     Indication: METASTASES TO BONE
     Dosage: OTHER INDICATION: MEDIASTINAL MASS, ROUTE REPORTED AS IVGTT.
     Route: 042
     Dates: start: 20070718, end: 20070719

REACTIONS (7)
  - Chest pain [Recovered/Resolved]
  - Heart rate increased [Recovered/Resolved]
  - Blood pressure decreased [Recovered/Resolved]
  - Tachypnoea [Recovered/Resolved]
  - Pyrexia [Recovered/Resolved]
  - Liver disorder [Recovering/Resolving]
  - Chills [Recovered/Resolved]

NARRATIVE: CASE EVENT DATE: 20070719
